FAERS Safety Report 21447677 (Version 2)
Quarter: 2023Q1

REPORT INFORMATION
  Report Type: Spontaneous
  Country: CN (occurrence: CN)
  Receive Date: 20221012
  Receipt Date: 20230302
  Transmission Date: 20230418
  Serious: Yes (Other)
  Sender: FDA-Public Use
  Company Number: CN-PFIZER INC-PV202200078772

PATIENT
  Age: 9 Year
  Sex: Male
  Weight: 33 kg

DRUGS (2)
  1. AZITHROMYCIN [Suspect]
     Active Substance: AZITHROMYCIN
     Indication: Pneumonia
     Dosage: 0.33 G, 1X/DAY
     Route: 041
     Dates: start: 20221004, end: 20221004
  2. DEXTROSE [Concomitant]
     Active Substance: DEXTROSE
     Indication: Pneumonia
     Dosage: 350 ML, 1X/DAY
     Route: 041
     Dates: start: 20221004, end: 20221004

REACTIONS (3)
  - Off label use [Unknown]
  - Rash [Recovering/Resolving]
  - Pruritus [Recovering/Resolving]

NARRATIVE: CASE EVENT DATE: 20221004
